FAERS Safety Report 4638240-9 (Version None)
Quarter: 2005Q2

REPORT INFORMATION
  Report Type: 
  Country: None (occurrence: None)
  Receive Date: 20050418
  Receipt Date: 20050328
  Transmission Date: 20051028
  Serious: Yes (Death, Other)
  Sender: FDA-Public Use
  Company Number: USA050394275

PATIENT
  Age: 40 Year
  Sex: Male

DRUGS (6)
  1. XIGRIS [Suspect]
     Indication: SEPSIS
  2. PRIMAXIN [Concomitant]
  3. IMMUNOSUPRESSANT AGENTS [Concomitant]
  4. STEROIDS [Concomitant]
  5. HEPARIN [Concomitant]
  6. INSULIN [Concomitant]

REACTIONS (1)
  - HAEMORRHAGE [None]
